FAERS Safety Report 8344040 (Version 2)
Quarter: 2013Q4

REPORT INFORMATION
  Report Type: Spontaneous
  Country: US (occurrence: US)
  Receive Date: 20120119
  Receipt Date: 20131009
  Transmission Date: 20140711
  Serious: Yes (Other)
  Sender: FDA-Public Use
  Company Number: US-PFIZER INC-2012010748

PATIENT
  Sex: Female

DRUGS (1)
  1. TORISEL [Suspect]
     Indication: RENAL CELL CARCINOMA STAGE IV
     Dosage: UNK

REACTIONS (5)
  - Transient ischaemic attack [Unknown]
  - Kidney infection [Unknown]
  - Cough [Unknown]
  - Disease progression [Unknown]
  - Renal cell carcinoma [Unknown]
